FAERS Safety Report 13341605 (Version 1)
Quarter: 2017Q1

REPORT INFORMATION
  Report Type: Spontaneous
  Country: US (occurrence: US)
  Receive Date: 20170315
  Receipt Date: 20170315
  Transmission Date: 20170428
  Serious: Yes (Hospitalization)
  Sender: FDA-Public Use
  Company Number: None

PATIENT
  Age: 59 Year
  Sex: Male

DRUGS (1)
  1. TEMOZOLOMIDE 100 MG SANDOS [Suspect]
     Active Substance: TEMOZOLOMIDE
     Indication: BRAIN NEOPLASM MALIGNANT
     Dosage: 300MGS FOR 5 DAYS EVERY 28 DAYS BY MOUTH
     Route: 048
     Dates: start: 20160615, end: 20170118

REACTIONS (1)
  - Seizure [None]

NARRATIVE: CASE EVENT DATE: 20170125
